FAERS Safety Report 8120421-3 (Version None)
Quarter: 2012Q1

REPORT INFORMATION
  Report Type: 
  Country: None (occurrence: None)
  Receive Date: 20120207
  Receipt Date: 20120125
  Transmission Date: 20120608
  Serious: Yes (Death, Hospitalization)
  Sender: FDA-Public Use
  Company Number: US-MYLANLABS-2012S1002313

PATIENT
  Age: 14 Year
  Sex: Male

DRUGS (2)
  1. PREDNISONE [Suspect]
     Indication: ACUTE LYMPHOCYTIC LEUKAEMIA
     Route: 065
  2. METHOTREXATE [Suspect]
     Indication: ACUTE LYMPHOCYTIC LEUKAEMIA
     Dosage: 100 MG/M2 (FIRST DOSE)
     Route: 065

REACTIONS (20)
  - BRONCHOPULMONARY ASPERGILLOSIS [None]
  - BACTERAEMIA [None]
  - RENAL FAILURE [None]
  - RESPIRATORY FAILURE [None]
  - DRUG CLEARANCE DECREASED [None]
  - BONE MARROW FAILURE [None]
  - NEUTROPENIC COLITIS [None]
  - HEPATIC FAILURE [None]
  - ATRIAL FIBRILLATION [None]
  - IRON OVERLOAD [None]
  - HEPATORENAL SYNDROME [None]
  - VENTRICULAR DYSFUNCTION [None]
  - NEUTROPENIA [None]
  - THROMBOCYTOPENIA [None]
  - PNEUMONIA [None]
  - ENCEPHALOPATHY [None]
  - COAGULOPATHY [None]
  - FUNGAEMIA [None]
  - SEPSIS [None]
  - ANAEMIA [None]
